FAERS Safety Report 17390050 (Version 2)
Quarter: 2020Q2

REPORT INFORMATION
  Report Type: Other
  Country: US (occurrence: US)
  Receive Date: 20200207
  Receipt Date: 20200413
  Transmission Date: 20200713
  Serious: Yes (Hospitalization, Other)
  Sender: FDA-Public Use
  Company Number: US-INTERCEPT-PM2020000266

PATIENT
  Age: 57 Year
  Sex: Female

DRUGS (6)
  1. OCALIVA [Suspect]
     Active Substance: OBETICHOLIC ACID
     Dosage: 10 MG, QD
     Route: 048
  2. URSODIOL. [Concomitant]
     Active Substance: URSODIOL
     Dosage: 300 MG, UNK
  3. ZYRTEC [Concomitant]
     Active Substance: CETIRIZINE HYDROCHLORIDE
     Dosage: 10 MG, UNK
  4. OCALIVA [Suspect]
     Active Substance: OBETICHOLIC ACID
     Indication: PRIMARY BILIARY CHOLANGITIS
     Dosage: 5 MG, QD
     Route: 048
     Dates: start: 20160629
  5. MILK THISTLE [Concomitant]
     Active Substance: DIETARY SUPPLEMENT\HERBALS\MILK THISTLE
     Dosage: 200 MG, UNK
  6. NEXIUM [Concomitant]
     Active Substance: ESOMEPRAZOLE MAGNESIUM
     Dosage: 20 MG, UNK

REACTIONS (4)
  - Hospitalisation [Unknown]
  - Therapy interrupted [Unknown]
  - Cerebrovascular accident [Unknown]
  - Malaise [Unknown]

NARRATIVE: CASE EVENT DATE: 202001
